FAERS Safety Report 9800096 (Version 2)
Quarter: 2014Q1

REPORT INFORMATION
  Report Type: Spontaneous
  Country: US (occurrence: US)
  Receive Date: 20140106
  Receipt Date: 20140106
  Transmission Date: 20141002
  Serious: Yes (Hospitalization)
  Sender: FDA-Public Use
  Company Number: US-GILEAD-2010-0032511

PATIENT
  Age: 80 Year
  Sex: Female
  Weight: 81.65 kg

DRUGS (7)
  1. LETAIRIS [Suspect]
     Indication: PULMONARY ARTERIAL HYPERTENSION
     Route: 048
     Dates: start: 20100830
  2. REVATIO [Concomitant]
  3. FUROSEMIDE [Concomitant]
  4. DILTIAZEM [Concomitant]
  5. CILOSTAZOL [Concomitant]
  6. TRIAMTERENE/ HYDROCHLOROTHIAZIDE [Concomitant]
  7. KCL [Concomitant]

REACTIONS (2)
  - Oedema [Not Recovered/Not Resolved]
  - Fluid overload [Not Recovered/Not Resolved]
